FAERS Safety Report 9523460 (Version 1)
Quarter: 2013Q3

REPORT INFORMATION
  Report Type: Spontaneous
  Country: PH (occurrence: PH)
  Receive Date: 20130913
  Receipt Date: 20130913
  Transmission Date: 20140515
  Serious: Yes (Death)
  Sender: FDA-Public Use
  Company Number: PH-009507513-1309PHL005144

PATIENT
  Sex: Male

DRUGS (1)
  1. VYTORIN [Suspect]
     Dosage: 1 DF, QD
     Route: 048

REACTIONS (2)
  - Disease complication [Fatal]
  - Dialysis [Unknown]
